FAERS Safety Report 9392661 (Version 1)
Quarter: 2013Q3

REPORT INFORMATION
  Report Type: Other
  Country: GB (occurrence: GB)
  Receive Date: 20130710
  Receipt Date: 20130710
  Transmission Date: 20140515
  Serious: Yes (Other)
  Sender: FDA-Public Use
  Company Number: GB-LUPIN PHARMACEUTICALS INC.-E2B_00001017

PATIENT
  Age: 74 Year
  Sex: Male

DRUGS (1)
  1. LOSARTAN [Suspect]
     Indication: HYPERTENSION
     Route: 065

REACTIONS (3)
  - Abnormal behaviour [Unknown]
  - Hypotension [Unknown]
  - Syncope [Unknown]
